FAERS Safety Report 6466109-6 (Version None)
Quarter: 2009Q4

REPORT INFORMATION
  Report Type: 
  Country: None (occurrence: None)
  Receive Date: 20091201
  Receipt Date: 20091201
  Transmission Date: 20100525
  Serious: Yes (Hospitalization, Other)
  Sender: FDA-Public Use
  Company Number: None

PATIENT
  Sex: Female
  Weight: 68.0396 kg

DRUGS (1)
  1. LYRICA [Suspect]
     Indication: FIBROMYALGIA
     Dosage: 2 @ DAILY APPRX 3 WKS WHEN FEET BECAME NUMB

REACTIONS (2)
  - NEUROPATHY PERIPHERAL [None]
  - WHEELCHAIR USER [None]
